FAERS Safety Report 7235612-3 (Version None)
Quarter: 2011Q1

REPORT INFORMATION
  Report Type: 
  Country: None (occurrence: None)
  Receive Date: 20110120
  Receipt Date: 20110117
  Transmission Date: 20110831
  Serious: Yes (Death)
  Sender: FDA-Public Use
  Company Number: PHHY2011US03545

PATIENT
  Sex: Male
  Weight: 36.735 kg

DRUGS (1)
  1. EXJADE [Suspect]
     Dosage: 1500 MG, QD
     Route: 048
     Dates: start: 20090801, end: 20090901

REACTIONS (1)
  - DEATH [None]
